FAERS Safety Report 12913003 (Version 1)
Quarter: 2016Q4

REPORT INFORMATION
  Report Type: Spontaneous
  Country: US (occurrence: US)
  Receive Date: 20161104
  Receipt Date: 20161104
  Transmission Date: 20170207
  Serious: Yes (Hospitalization)
  Sender: FDA-Public Use
  Company Number: US-JNJFOC-20161104020

PATIENT
  Age: 88 Year
  Sex: Female
  Weight: 54 kg

DRUGS (15)
  1. FERROUS SULFATE. [Concomitant]
     Active Substance: FERROUS SULFATE
  2. VITAMIN D [Concomitant]
     Active Substance: CHOLECALCIFEROL
  3. ASPIRIN. [Concomitant]
     Active Substance: ASPIRIN
  4. AMIODARONE [Concomitant]
     Active Substance: AMIODARONE
  5. IMBRUVICA [Suspect]
     Active Substance: IBRUTINIB
     Indication: CHRONIC LYMPHOCYTIC LEUKAEMIA
     Route: 048
     Dates: start: 2015
  6. AMLODIPINE [Concomitant]
     Active Substance: AMLODIPINE BESYLATE
  7. ATORVASTATIN [Concomitant]
     Active Substance: ATORVASTATIN
  8. LIDOCAINE. [Concomitant]
     Active Substance: LIDOCAINE
  9. FUROSEMIDE. [Concomitant]
     Active Substance: FUROSEMIDE
  10. IMBRUVICA [Suspect]
     Active Substance: IBRUTINIB
     Indication: CHRONIC LYMPHOCYTIC LEUKAEMIA
     Route: 048
     Dates: start: 201610
  11. METOPROLOL. [Concomitant]
     Active Substance: METOPROLOL
  12. IMDUR [Concomitant]
     Active Substance: ISOSORBIDE MONONITRATE
  13. LISINOPRIL. [Concomitant]
     Active Substance: LISINOPRIL
  14. POTASSIUM [Concomitant]
     Active Substance: POTASSIUM
  15. PLAVIX [Concomitant]
     Active Substance: CLOPIDOGREL BISULFATE

REACTIONS (2)
  - Dyspnoea [Recovering/Resolving]
  - Pulmonary oedema [Recovering/Resolving]

NARRATIVE: CASE EVENT DATE: 20161021
